FAERS Safety Report 18013940 (Version 1)
Quarter: 2020Q3

REPORT INFORMATION
  Report Type: Spontaneous
  Country: US (occurrence: US)
  Receive Date: 20200712
  Receipt Date: 20200712
  Transmission Date: 20201103
  Serious: No
  Sender: FDA-Public Use
  Company Number: None

PATIENT
  Age: 23 Year
  Sex: Female
  Weight: 54 kg

DRUGS (12)
  1. DILITIAZEM [Concomitant]
     Active Substance: DILTIAZEM
  2. GABAPENTIN. [Concomitant]
     Active Substance: GABAPENTIN
  3. VENTOLIN [Concomitant]
     Active Substance: ALBUTEROL SULFATE
  4. DICLOFENAC [Concomitant]
     Active Substance: DICLOFENAC
  5. BIOTIN [Concomitant]
     Active Substance: BIOTIN
  6. SYMBICORT [Concomitant]
     Active Substance: BUDESONIDE\FORMOTEROL FUMARATE DIHYDRATE
  7. NARATRIPTAN [Concomitant]
     Active Substance: NARATRIPTAN HYDROCHLORIDE
  8. VITAMIN D [Concomitant]
     Active Substance: VITAMIN D NOS
  9. AIMOVIG [Suspect]
     Active Substance: ERENUMAB-AOOE
     Indication: MIGRAINE
     Dosage: ?          QUANTITY:1 INJECTION(S);OTHER FREQUENCY:ONCE A MONTH;?
     Route: 023
     Dates: start: 20200711, end: 20200711
  10. NORETHINDRONE. [Concomitant]
     Active Substance: NORETHINDRONE
  11. AIMOVIG [Concomitant]
     Active Substance: ERENUMAB-AOOE
  12. SINGULAIR [Concomitant]
     Active Substance: MONTELUKAST SODIUM

REACTIONS (2)
  - Pruritus [None]
  - Injection site urticaria [None]

NARRATIVE: CASE EVENT DATE: 20200712
